FAERS Safety Report 12354995 (Version 3)
Quarter: 2020Q3

REPORT INFORMATION
  Report Type: Report from Study
  Country: IN (occurrence: IN)
  Receive Date: 20160511
  Receipt Date: 20200902
  Transmission Date: 20201102
  Serious: Yes (Life-Threatening, Hospitalization)
  Sender: FDA-Public Use
  Company Number: IN-ROCHE-1753970

PATIENT
  Age: 45 Year
  Sex: Male
  Weight: 77.8 kg

DRUGS (29)
  1. RITUXIMAB. [Suspect]
     Active Substance: RITUXIMAB
     Indication: GRANULOMATOSIS WITH POLYANGIITIS
     Dosage: VISIT 1, AT 12:30 HOURS AND THERAPY COMPLETED AT 16:03 HRS?ON 02/APR/2016, HE RECEIVED LAST DOSE PRI
     Route: 042
     Dates: start: 20160310
  2. WYSOLONE [Concomitant]
     Active Substance: PREDNISOLONE
     Indication: VASCULITIS
     Dosage: AFTER BREAKFAST
     Route: 048
     Dates: start: 20160430
  3. SHELCAL [Concomitant]
     Active Substance: CALCIUM CARBONATE\CHOLECALCIFEROL
     Indication: HYPOCALCAEMIA
     Route: 048
     Dates: start: 20160328
  4. ELTROXIN [Concomitant]
     Active Substance: LEVOTHYROXINE
     Dosage: HALF AN HOUR BEFORE BREAKFAST
     Route: 048
     Dates: start: 20160303
  5. FEBURIC [Concomitant]
     Active Substance: FEBUXOSTAT
     Dosage: ON ALTERNATIVE DAYS
     Route: 048
     Dates: start: 20160511
  6. METHYLPREDNISOLONE. [Suspect]
     Active Substance: METHYLPREDNISOLONE
     Indication: GRANULOMATOSIS WITH POLYANGIITIS
     Dosage: DATE OF LAST DOSE PRIOR TO SAE: 10/MAR/2016
     Route: 042
     Dates: start: 20160302
  7. CIPROFLOXACIN. [Concomitant]
     Active Substance: CIPROFLOXACIN
     Dates: start: 20160515
  8. NIFEDIPINE. [Concomitant]
     Active Substance: NIFEDIPINE
     Route: 048
     Dates: start: 20160328
  9. CALCITRIOL. [Concomitant]
     Active Substance: CALCITRIOL
     Route: 048
     Dates: start: 20160303
  10. RITUXIMAB. [Suspect]
     Active Substance: RITUXIMAB
     Dosage: VISIT 3, AT 14:00 HRS AND COMPLETED AT 16:30 HRS.
     Route: 042
     Dates: start: 20160325
  11. MINIPRESS [Concomitant]
     Active Substance: PRAZOSIN HYDROCHLORIDE
     Route: 048
     Dates: start: 20160419
  12. LEVOTHYROXINE. [Concomitant]
     Active Substance: LEVOTHYROXINE
     Dosage: HALF AN HOUR BEFORE BREAKFAST
     Route: 048
     Dates: start: 20160303
  13. RITUXIMAB. [Suspect]
     Active Substance: RITUXIMAB
     Dosage: VISIT 2, AT 12:15 HRS AND THERAPY COMPLETED AT 14:47 HRS.
     Route: 042
     Dates: start: 20160317
  14. RITUXIMAB. [Suspect]
     Active Substance: RITUXIMAB
     Dosage: VISIT 4, AT 11:15 HRS AND COMPLETED AT 13: 47  HRS.
     Route: 042
     Dates: start: 20160402
  15. RESTYL [Concomitant]
     Route: 048
     Dates: start: 20160419
  16. PREDNISOLONE. [Concomitant]
     Active Substance: PREDNISOLONE
     Indication: VASCULITIS
     Dosage: AFTER BREAKFAST
     Route: 048
     Dates: start: 20160430
  17. METOPROLOL. [Concomitant]
     Active Substance: METOPROLOL
     Route: 048
     Dates: start: 20160303
  18. FEBURIC [Concomitant]
     Active Substance: FEBUXOSTAT
     Dosage: ON ALTERNATIVE DAYS
     Route: 048
     Dates: start: 20160419
  19. ALPRAZOLAM. [Concomitant]
     Active Substance: ALPRAZOLAM
     Route: 048
     Dates: start: 20160419
  20. PANTOPRAZOLE [Concomitant]
     Active Substance: PANTOPRAZOLE
     Indication: DYSPEPSIA
     Route: 048
     Dates: start: 20160303
  21. WYSOLONE [Concomitant]
     Active Substance: PREDNISOLONE
     Route: 048
     Dates: start: 20160511
  22. PAN?D [Concomitant]
     Active Substance: DOMPERIDONE\PANTOPRAZOLE SODIUM
     Indication: DYSPEPSIA
     Route: 048
     Dates: start: 20160303
  23. MINIPRESS [Concomitant]
     Active Substance: PRAZOSIN HYDROCHLORIDE
     Route: 048
     Dates: start: 20160511
  24. FOLVITE [Concomitant]
     Active Substance: FOLIC ACID
     Route: 048
     Dates: start: 20160419
  25. FEFOL Z [Concomitant]
     Route: 048
     Dates: start: 20160419
  26. NICARDIA [Concomitant]
     Active Substance: NIFEDIPINE
     Route: 048
     Dates: start: 20160328
  27. AUGMENTIN DUO [Concomitant]
     Active Substance: AMOXICILLIN\CLAVULANATE POTASSIUM
     Dosage: FOR 5 DAYS
     Route: 048
     Dates: start: 20160419, end: 20160423
  28. CALCIUM CARBONATE/VITAMIN D3 [Concomitant]
     Active Substance: CALCIUM CARBONATE\CHOLECALCIFEROL
     Indication: HYPOCALCAEMIA
     Route: 048
     Dates: start: 20160328
  29. PIPERACILLIN/TAZOBACTAM [Concomitant]
     Active Substance: PIPERACILLIN SODIUM\TAZOBACTAM SODIUM
     Dates: start: 20160509, end: 20160514

REACTIONS (2)
  - Pneumonia [Recovered/Resolved]
  - Respiratory failure [Recovered/Resolved]

NARRATIVE: CASE EVENT DATE: 20160504
